FAERS Safety Report 24104610 (Version 1)
Quarter: 2024Q3

REPORT INFORMATION
  Report Type: Spontaneous
  Country: US (occurrence: US)
  Receive Date: 20240717
  Receipt Date: 20240717
  Transmission Date: 20241017
  Serious: Yes (Other)
  Sender: CHIESI
  Company Number: US-CHIESI-2024CHF04178

PATIENT
  Sex: Male

DRUGS (2)
  1. KENGREAL [Suspect]
     Active Substance: CANGRELOR
     Indication: Percutaneous coronary intervention
     Dosage: 30 MICROGRAM/KILOGRAM
     Route: 040
  2. KENGREAL [Suspect]
     Active Substance: CANGRELOR
     Indication: Acute myocardial infarction
     Dosage: UNK
     Route: 042

REACTIONS (4)
  - Ventricular fibrillation [Unknown]
  - Vascular stent thrombosis [Recovered/Resolved]
  - Drug ineffective [Unknown]
  - Coagulation time abnormal [Unknown]

NARRATIVE: CASE EVENT DATE: 20240616
